FAERS Safety Report 8795095 (Version 2)
Quarter: 2015Q2

REPORT INFORMATION
  Report Type: Report from Study
  Country: US (occurrence: US)
  Receive Date: 20120917
  Receipt Date: 20150623
  Transmission Date: 20150821
  Serious: Yes (Death)
  Sender: FDA-Public Use
  Company Number: US-ROCHE-1129286

PATIENT
  Age: 51 Year
  Sex: Male

DRUGS (9)
  1. ARANESP [Concomitant]
     Active Substance: DARBEPOETIN ALFA
     Route: 058
  2. TAXOTERE [Concomitant]
     Active Substance: DOCETAXEL
     Route: 065
     Dates: start: 20050708
  3. ALOXI [Concomitant]
     Active Substance: PALONOSETRON HYDROCHLORIDE
     Route: 065
  4. AVASTIN [Suspect]
     Active Substance: BEVACIZUMAB
     Indication: PROSTATE CANCER METASTATIC
     Route: 042
     Dates: end: 20050728
  5. MITOXANTRONE [Concomitant]
     Active Substance: MITOXANTRONE HYDROCHLORIDE
     Route: 065
     Dates: start: 20050728
  6. NEULASTA [Concomitant]
     Active Substance: PEGFILGRASTIM
     Route: 002
  7. DECADRON [Concomitant]
     Active Substance: DEXAMETHASONE
     Route: 065
  8. NOVANTRONE [Concomitant]
     Active Substance: MITOXANTRONE HYDROCHLORIDE
     Route: 065
     Dates: start: 20050728
  9. ZOLADEX [Concomitant]
     Active Substance: GOSERELIN ACETATE
     Route: 065
     Dates: end: 20050725

REACTIONS (5)
  - Death [Fatal]
  - Haemoglobin decreased [Unknown]
  - Back pain [Recovered/Resolved]
  - Pallor [Unknown]
  - Off label use [Unknown]

NARRATIVE: CASE EVENT DATE: 20061224
